FAERS Safety Report 8311164-1 (Version None)
Quarter: 2012Q2

REPORT INFORMATION
  Report Type: 
  Country: None (occurrence: None)
  Receive Date: 20120423
  Receipt Date: 20120416
  Transmission Date: 20120825
  Serious: Yes (Life-Threatening, Other)
  Sender: FDA-Public Use
  Company Number: ACO_29839_2012

PATIENT
  Age: 56 Year
  Sex: Female
  Weight: 59.4 kg

DRUGS (13)
  1. VALIUM [Concomitant]
  2. MULTIVITAMIN [Concomitant]
  3. PREVACID [Concomitant]
  4. CALCIUM [Concomitant]
  5. CARVEDILOL [Concomitant]
  6. AMPYRA [Suspect]
     Indication: GAIT DISTURBANCE
     Dosage: 10 MG, QD, ORAL; 10 MG, BID, ORAL; 10 MG, QD, ORAL
     Route: 048
     Dates: start: 20111101, end: 20111201
  7. AMPYRA [Suspect]
     Indication: GAIT DISTURBANCE
     Dosage: 10 MG, QD, ORAL; 10 MG, BID, ORAL; 10 MG, QD, ORAL
     Route: 048
     Dates: start: 20111201, end: 20120301
  8. AMPYRA [Suspect]
     Indication: GAIT DISTURBANCE
     Dosage: 10 MG, QD, ORAL; 10 MG, BID, ORAL; 10 MG, QD, ORAL
     Route: 048
     Dates: start: 20111001, end: 20111101
  9. MAGNESIUM [Concomitant]
  10. FISH OIL [Concomitant]
  11. GABAPENTIN [Concomitant]
  12. VITAMIN D [Concomitant]
  13. CYMBALTA [Concomitant]

REACTIONS (8)
  - SUICIDAL IDEATION [None]
  - INAPPROPRIATE SCHEDULE OF DRUG ADMINISTRATION [None]
  - ANXIETY [None]
  - PSYCHOTIC DISORDER [None]
  - PAIN [None]
  - DEPRESSION [None]
  - MUSCLE SPASMS [None]
  - INSOMNIA [None]
